FAERS Safety Report 11859875 (Version 1)
Quarter: 2015Q4

REPORT INFORMATION
  Report Type: Spontaneous
  Country: US (occurrence: US)
  Receive Date: 20151222
  Receipt Date: 20151222
  Transmission Date: 20160305
  Serious: Yes (Other)
  Sender: FDA-Public Use
  Company Number: US-PFIZER INC-2015447734

PATIENT
  Age: 46 Year
  Sex: Female
  Weight: 70.31 kg

DRUGS (10)
  1. CHANTIX [Suspect]
     Active Substance: VARENICLINE TARTRATE
     Indication: SMOKING CESSATION THERAPY
     Dosage: 1 MG, 2X/DAY
     Route: 048
  2. DIAZEPAM. [Concomitant]
     Active Substance: DIAZEPAM
     Dosage: 5 MG, UNK
  3. FLEXERIL [Concomitant]
     Active Substance: CYCLOBENZAPRINE HYDROCHLORIDE
     Dosage: 10 MG, UNK
  4. IBUPROFEN. [Concomitant]
     Active Substance: IBUPROFEN
     Dosage: 800 MG, UNK
  5. LORTAB [Concomitant]
     Active Substance: ACETAMINOPHEN\HYDROCODONE BITARTRATE
     Dosage: [HYDROCODONE BITARTRATE 10MG]/[PARACETAMOL 325 MG]
  6. COPAXONE [Concomitant]
     Active Substance: GLATIRAMER ACETATE
     Indication: MULTIPLE SCLEROSIS
     Dosage: 40 MG, THREE TIMES A WEEK
  7. ESTRADIOL. [Concomitant]
     Active Substance: ESTRADIOL
     Dosage: 0.5 MG, UNK
  8. CARBIDOPA AND LEVODOPA [Concomitant]
     Active Substance: CARBIDOPA\LEVODOPA
     Dosage: [CARBIDOPA 25MG]/[LEVODOPA 100 MG]
  9. FENTANYL. [Concomitant]
     Active Substance: FENTANYL
     Dosage: 125 UG, (100 MG PATCH AND A 25 MG PATCH IN TOTAL BECAME 125 MCG PER HOUR)
  10. PERCOCET [Concomitant]
     Active Substance: ACETAMINOPHEN\OXYCODONE HYDROCHLORIDE
     Dosage: [OXYCODONE HYDROCHLORIDE, OXYCODONE TEREPHTHALATE 10MG]/[PARACETAMOL 325 MG]

REACTIONS (8)
  - Hallucination [Unknown]
  - Feeling abnormal [Unknown]
  - Crying [Unknown]
  - Insomnia [Unknown]
  - Speech disorder [Unknown]
  - Memory impairment [Unknown]
  - Nightmare [Unknown]
  - Sleep disorder [Unknown]
